FAERS Safety Report 7621004-1 (Version None)
Quarter: 2011Q3

REPORT INFORMATION
  Report Type: 
  Country: None (occurrence: None)
  Receive Date: 20110719
  Receipt Date: 20100830
  Transmission Date: 20111222
  Serious: No
  Sender: FDA-Public Use
  Company Number: US-KINGPHARMUSA00001-K201001092

PATIENT
  Sex: Female

DRUGS (8)
  1. COZAAR [Concomitant]
     Indication: BLOOD PRESSURE INCREASED
     Dosage: UNK
     Dates: start: 20100708
  2. FISH OIL [Concomitant]
     Dosage: 730 MG, QD
  3. LEVOXYL [Suspect]
     Indication: HYPOTHYROIDISM
     Dosage: 25 MCG, QD
     Route: 048
     Dates: start: 20081011
  4. PRILOSEC [Concomitant]
     Dosage: UNK
  5. VITAMIN D [Concomitant]
     Dosage: 2500 IU, QOD
  6. ASPIRIN [Concomitant]
     Dosage: UNK
  7. FOLIC ACID [Concomitant]
     Dosage: 400 MG, QOD
  8. XANAX [Concomitant]
     Indication: STRESS
     Dosage: UNK

REACTIONS (1)
  - BLOOD THYROID STIMULATING HORMONE INCREASED [None]
